FAERS Safety Report 15965354 (Version 1)
Quarter: 2019Q1

REPORT INFORMATION
  Report Type: Spontaneous
  Country: US (occurrence: US)
  Receive Date: 20190123
  Receipt Date: 20190123
  Transmission Date: 20190418
  Serious: Yes (Hospitalization)
  Sender: FDA-Public Use
  Company Number: None

PATIENT
  Age: 62 Year
  Sex: Male
  Weight: 71.5 kg

DRUGS (3)
  1. VELCADE [Suspect]
     Active Substance: BORTEZOMIB
     Dates: end: 20170420
  2. DEXAMETHASONE. [Suspect]
     Active Substance: DEXAMETHASONE
     Dates: end: 20170421
  3. LENALIDOMIDE (CC-5013) [Suspect]
     Active Substance: LENALIDOMIDE
     Dates: end: 20170423

REACTIONS (8)
  - Asthenia [None]
  - Loss of consciousness [None]
  - Gait disturbance [None]
  - Dizziness [None]
  - Orthostatic hypotension [None]
  - Pulmonary embolism [None]
  - Dysstasia [None]
  - Deep vein thrombosis [None]

NARRATIVE: CASE EVENT DATE: 20170424
